FAERS Safety Report 6027153-6 (Version None)
Quarter: 2009Q1

REPORT INFORMATION
  Report Type: 
  Country: None (occurrence: None)
  Receive Date: 20090105
  Receipt Date: 20081229
  Transmission Date: 20090719
  Serious: Yes (Other)
  Sender: FDA-Public Use
  Company Number: US-TYCO HEALTHCARE/MALLINCKRODT-T200802150

PATIENT
  Sex: Female

DRUGS (2)
  1. ULTRA-TECHNEKOW [Suspect]
     Indication: BIOPSY BREAST
     Dosage: UNK
     Dates: start: 20081114, end: 20081114
  2. TECHNETIUM 99M SULFUR COLLOID INJ [Suspect]
     Indication: BIOPSY BREAST
     Dosage: UNK
     Dates: start: 20081114, end: 20081114

REACTIONS (1)
  - INJECTION SITE NECROSIS [None]
